FAERS Safety Report 5981683-1 (Version None)
Quarter: 2008Q4

REPORT INFORMATION
  Report Type: 
  Country: None (occurrence: None)
  Receive Date: 20081202
  Receipt Date: 20081117
  Transmission Date: 20090506
  Serious: Yes (Other)
  Sender: FDA-Public Use
  Company Number: 2008S1020644

PATIENT
  Age: 63 Year
  Sex: Female

DRUGS (8)
  1. TAMOXIFEN CITRATE [Suspect]
     Indication: BREAST CANCER
  2. METHIMAZOLE [Suspect]
     Indication: GOITRE
     Dates: start: 19960101
  3. GABAPENTIN [Suspect]
  4. ANASTROZOLE [Suspect]
     Indication: BREAST CANCER
     Dates: start: 20060101
  5. LETROZOLE [Suspect]
     Indication: BREAST CANCER
  6. TRASTUZUMAB [Suspect]
     Indication: BREAST CANCER
  7. FULVESTRANT [Suspect]
     Indication: BREAST CANCER
  8. IODINE [Concomitant]

REACTIONS (13)
  - ARTHRALGIA [None]
  - BURNING SENSATION [None]
  - CONNECTIVE TISSUE DISORDER [None]
  - CUTANEOUS VASCULITIS [None]
  - DRUG ERUPTION [None]
  - INDURATION [None]
  - PAIN [None]
  - PURPURA [None]
  - RASH ERYTHEMATOUS [None]
  - SKIN LESION [None]
  - SKIN ULCER [None]
  - TOXIC NODULAR GOITRE [None]
  - WOUND SECRETION [None]
